FAERS Safety Report 6039629-6 (Version None)
Quarter: 2009Q1

REPORT INFORMATION
  Report Type: 
  Country: None (occurrence: None)
  Receive Date: 20090116
  Receipt Date: 20090113
  Transmission Date: 20090719
  Serious: Yes (Death)
  Sender: FDA-Public Use
  Company Number: US-BRISTOL-MYERS SQUIBB COMPANY-14470256

PATIENT
  Age: 52 Year
  Sex: Female

DRUGS (5)
  1. TRAZODONE HCL [Suspect]
  2. ACETAMINOPHEN [Suspect]
  3. CLONAZEPAM [Suspect]
  4. AMITRIPTYLINE HCL [Suspect]
  5. SERTRALINE [Suspect]

REACTIONS (1)
  - COMPLETED SUICIDE [None]
